FAERS Safety Report 12553482 (Version 1)
Quarter: 2016Q3

REPORT INFORMATION
  Report Type: Spontaneous
  Country: US (occurrence: US)
  Receive Date: 20160713
  Receipt Date: 20160713
  Transmission Date: 20161109
  Serious: No
  Sender: FDA-Public Use
  Company Number: US-PERRIGO-16US015429

PATIENT
  Sex: Female
  Weight: 87.53 kg

DRUGS (1)
  1. LANSOPRAZOLE. [Suspect]
     Active Substance: LANSOPRAZOLE
     Indication: GASTROOESOPHAGEAL REFLUX DISEASE
     Dosage: 15 MG, BID
     Route: 048
     Dates: start: 201503

REACTIONS (3)
  - Incorrect drug administration duration [Unknown]
  - Weight increased [Unknown]
  - Inappropriate schedule of drug administration [Unknown]

NARRATIVE: CASE EVENT DATE: 201603
